FAERS Safety Report 9149257 (Version 1)
Quarter: 2013Q1

REPORT INFORMATION
  Report Type: Spontaneous
  Country: TR (occurrence: None)
  Receive Date: 20130131
  Receipt Date: 20130131
  Transmission Date: 20140127
  Serious: Yes (Hospitalization)
  Sender: FDA-Public Use
  Company Number: B0863355A

PATIENT
  Age: 52 Year
  Sex: Female

DRUGS (2)
  1. PAROXETINE HYDROCHLORIDE [Suspect]
  2. SERTRALINE [Suspect]

REACTIONS (3)
  - Neuroleptic malignant syndrome [None]
  - Blood pressure increased [None]
  - Tachycardia [None]
